FAERS Safety Report 12555486 (Version 2)
Quarter: 2016Q3

REPORT INFORMATION
  Report Type: Spontaneous
  Country: GB (occurrence: GB)
  Receive Date: 20160714
  Receipt Date: 20160811
  Transmission Date: 20161109
  Serious: Yes (Hospitalization)
  Sender: FDA-Public Use
  Company Number: GB-AUROBINDO-AUR-APL-2016-08716

PATIENT
  Age: 36 Year
  Sex: Male

DRUGS (1)
  1. METOPROLOL 50MG [Suspect]
     Active Substance: METOPROLOL
     Indication: PALPITATIONS
     Dosage: 50 MG, TWO TIMES A DAY
     Route: 048
     Dates: start: 20160604

REACTIONS (3)
  - Palpitations [Not Recovered/Not Resolved]
  - Fatigue [Not Recovered/Not Resolved]
  - Heart rate irregular [Not Recovered/Not Resolved]

NARRATIVE: CASE EVENT DATE: 20160606
